FAERS Safety Report 5597114-X (Version None)
Quarter: 2008Q1

REPORT INFORMATION
  Report Type: 
  Country: None (occurrence: None)
  Receive Date: 20080121
  Receipt Date: 20080109
  Transmission Date: 20080703
  Serious: Yes (Other)
  Sender: FDA-Public Use
  Company Number: PHBS2008AU00752

PATIENT
  Age: 36 Year
  Sex: Female

DRUGS (4)
  1. CYCLOSPORINE [Suspect]
     Indication: RENAL TRANSPLANT
     Dosage: 75 MG, BID
     Route: 065
  2. AZATHIOPRINE [Suspect]
     Indication: RENAL TRANSPLANT
     Dosage: 100 MG/D
     Route: 065
  3. MYCOPHENOLATE MOFETIL [Suspect]
     Indication: RENAL TRANSPLANT
     Dosage: 1 G, BID
     Route: 065
  4. PREDNISOLONE [Suspect]
     Indication: RENAL TRANSPLANT
     Dosage: 25 MG/D
     Route: 048

REACTIONS (11)
  - BLOOD CREATININE INCREASED [None]
  - CHRONIC ALLOGRAFT NEPHROPATHY [None]
  - DEEP VEIN THROMBOSIS [None]
  - FOCAL GLOMERULOSCLEROSIS [None]
  - HAEMODIALYSIS [None]
  - NEPHRITIS INTERSTITIAL [None]
  - NEPHROGENIC SYSTEMIC FIBROSIS [None]
  - NEPHROPATHY TOXIC [None]
  - RASH PAPULAR [None]
  - RENAL FAILURE [None]
  - SKIN DISORDER [None]
